FAERS Safety Report 4303613-0 (Version None)
Quarter: 2004Q1

REPORT INFORMATION
  Report Type: 
  Country: None (occurrence: None)
  Receive Date: 20040225
  Receipt Date: 20031017
  Transmission Date: 20041129
  Serious: Yes (Other)
  Sender: FDA-Public Use
  Company Number: BW-BRISTOL-MYERS SQUIBB COMPANY-12427910

PATIENT
  Sex: Male

DRUGS (2)
  1. EFAVIRENZ [Suspect]
     Indication: HIV INFECTION
     Dates: start: 20030609
  2. COMBIVIR [Suspect]
     Indication: HIV INFECTION
     Dates: start: 20030609

REACTIONS (4)
  - FEBRILE NEUTROPENIA [None]
  - HYPERHIDROSIS [None]
  - NEUTROPENIA [None]
  - PYREXIA [None]
